FAERS Safety Report 21062113 (Version 4)
Quarter: 2022Q3

REPORT INFORMATION
  Report Type: Spontaneous
  Country: CA (occurrence: CA)
  Receive Date: 20220710
  Receipt Date: 20220909
  Transmission Date: 20221027
  Serious: Yes (Other)
  Sender: FDA-Public Use
  Company Number: CA-CELLTRION INC.-2022CA009104

PATIENT

DRUGS (6)
  1. INFLECTRA [Suspect]
     Active Substance: INFLIXIMAB-DYYB
     Indication: Crohn^s disease
     Dosage: 10MG/KG, EVERY 6 WEEKS, NOT YET STARTED
     Route: 042
  2. INFLECTRA [Suspect]
     Active Substance: INFLIXIMAB-DYYB
     Dosage: 10MG/KG,WEEKS 0,2,6 THEN EVERY 6 WEEKS
     Route: 042
     Dates: start: 20220519
  3. INFLECTRA [Suspect]
     Active Substance: INFLIXIMAB-DYYB
     Dosage: 10MG/KG
     Route: 042
     Dates: start: 20220519, end: 20220519
  4. INFLECTRA [Suspect]
     Active Substance: INFLIXIMAB-DYYB
     Dosage: 10MG/KG,WEEKS 0,2,6 THEN EVERY 6 WEEKS WEEK 0
     Route: 042
     Dates: start: 20220630
  5. INFLECTRA [Suspect]
     Active Substance: INFLIXIMAB-DYYB
     Dosage: 800 MG (SUPPOSED TO RECEIVE 10MG/KG,WEEKS 0,2,6 THEN EVERY 6 WEEKS)
     Route: 042
     Dates: start: 20220714
  6. INFLECTRA [Suspect]
     Active Substance: INFLIXIMAB-DYYB
     Dosage: 800 MG (SUPPOSED TO RECEIVE 10MG/KG,WEEKS 0,2,6 THEN EVERY 6 WEEKS)
     Route: 042
     Dates: start: 20220825

REACTIONS (7)
  - Crohn^s disease [Unknown]
  - Wound [Recovered/Resolved]
  - Off label use [Unknown]
  - Inappropriate schedule of product administration [Unknown]
  - Incorrect dose administered [Unknown]
  - Eczema [Not Recovered/Not Resolved]
  - Pruritus [Not Recovered/Not Resolved]

NARRATIVE: CASE EVENT DATE: 20220101
